FAERS Safety Report 21371757 (Version 1)
Quarter: 2022Q3

REPORT INFORMATION
  Report Type: Spontaneous
  Country: US (occurrence: None)
  Receive Date: 20220922
  Receipt Date: 20220922
  Transmission Date: 20221027
  Serious: Yes (Hospitalization)
  Sender: FDA-Public Use
  Company Number: None

PATIENT
  Age: 70 Year
  Sex: Female

DRUGS (11)
  1. AMBRISENTAN [Suspect]
     Active Substance: AMBRISENTAN
     Indication: Pulmonary arterial hypertension
     Dosage: FREQUENCY : DAILY;?
     Route: 048
     Dates: start: 20150623
  2. TADALAFIL [Suspect]
     Active Substance: TADALAFIL
  3. SELEXIPAG [Suspect]
     Active Substance: SELEXIPAG
  4. TORSEMIDE [Concomitant]
     Active Substance: TORSEMIDE
  5. METOPROLOL [Concomitant]
     Active Substance: METOPROLOL
  6. propylhiouracil [Concomitant]
  7. DABIGATRAN [Concomitant]
     Active Substance: DABIGATRAN
  8. METAMUCIL [Concomitant]
     Active Substance: PLANTAGO SEED
  9. DIGOXIN [Concomitant]
     Active Substance: DIGOXIN
  10. SPIRONOLACTONE [Concomitant]
     Active Substance: SPIRONOLACTONE
  11. FISH OIL [Concomitant]
     Active Substance: FISH OIL

REACTIONS (4)
  - Haemoglobin decreased [None]
  - Transfusion [None]
  - Hypervolaemia [None]
  - Cardiac failure [None]

NARRATIVE: CASE EVENT DATE: 20220906
